FAERS Safety Report 4343933-7 (Version None)
Quarter: 2004Q2

REPORT INFORMATION
  Report Type: 
  Country: None (occurrence: None)
  Receive Date: 20040419
  Receipt Date: 20040331
  Transmission Date: 20050107
  Serious: Yes (Hospitalization)
  Sender: FDA-Public Use
  Company Number: DSA_60413_2004

PATIENT
  Age: 23 Year
  Sex: Female

DRUGS (1)
  1. PRIMIDONE [Suspect]
     Indication: COMPLEX PARTIAL SEIZURES
     Dosage: 1250 MG DAILY PO
     Route: 048

REACTIONS (3)
  - AUTOIMMUNE THYROIDITIS [None]
  - EXOPHTHALMOS [None]
  - MYASTHENIA GRAVIS [None]
